FAERS Safety Report 10779248 (Version 1)
Quarter: 2015Q1

REPORT INFORMATION
  Report Type: Spontaneous
  Country: FR (occurrence: FR)
  Receive Date: 20150210
  Receipt Date: 20150210
  Transmission Date: 20150721
  Serious: Yes (Hospitalization, Other)
  Sender: FDA-Public Use
  Company Number: FR-PFIZER INC-2015051950

PATIENT
  Age: 76 Year
  Sex: Female

DRUGS (8)
  1. ASPEGIC [Concomitant]
     Active Substance: ASPIRIN DL-LYSINE
     Dosage: 100 MG, 1X/DAY
     Route: 048
     Dates: start: 200412
  2. ATENOLOL. [Suspect]
     Active Substance: ATENOLOL
     Dosage: 50 MG, DAILY
     Route: 048
     Dates: start: 20141021
  3. PROGRAF [Concomitant]
     Active Substance: TACROLIMUS\TACROLIMUS ANHYDROUS
     Dosage: 2 MG, 2X/DAY
     Route: 048
     Dates: start: 200412
  4. PIASCLEDINE [Concomitant]
     Active Substance: AVOCADO OIL\SOYBEAN OIL
     Dosage: 300 MG, 1X/DAY
     Route: 048
     Dates: start: 20121218
  5. LEXOMIL [Concomitant]
     Active Substance: BROMAZEPAM
     Dosage: 6 MG, UNK
     Route: 048
  6. CELLCEPT [Concomitant]
     Active Substance: MYCOPHENOLATE MOFETIL\MYCOPHENOLATE MOFETIL HYDROCHLORIDE
     Dosage: 500 MG, 1X/DAY
     Route: 048
     Dates: start: 200412
  7. ATENOLOL. [Suspect]
     Active Substance: ATENOLOL
     Indication: HYPERTENSION
     Dosage: 50 MG, 2X/DAY
     Route: 048
     Dates: end: 20141017
  8. ATENOLOL. [Suspect]
     Active Substance: ATENOLOL
     Dosage: 50 MG, 2X/DAY
     Route: 048
     Dates: start: 20141027

REACTIONS (2)
  - Sinus bradycardia [Unknown]
  - Hypothermia [Unknown]

NARRATIVE: CASE EVENT DATE: 20141017
